FAERS Safety Report 24303088 (Version 11)
Quarter: 2025Q2

REPORT INFORMATION
  Report Type: Report from Study
  Country: US (occurrence: US)
  Receive Date: 20240910
  Receipt Date: 20250618
  Transmission Date: 20250716
  Serious: Yes (Other)
  Sender: SUNOVION
  Company Number: US-SUMITOMO PHARMA SWITZERLAND GMBH-2024SPA001471

PATIENT

DRUGS (3)
  1. ORGOVYX [Suspect]
     Active Substance: RELUGOLIX
     Indication: Prostate cancer
     Dosage: 360 MG, SINGLE
     Route: 048
     Dates: start: 20240801, end: 20240801
  2. ORGOVYX [Suspect]
     Active Substance: RELUGOLIX
     Dosage: 120 MG, QD
     Route: 048
     Dates: start: 20240802
  3. TYLENOL [Suspect]
     Active Substance: ACETAMINOPHEN
     Route: 065

REACTIONS (29)
  - Prostatic operation [Unknown]
  - Gastrooesophageal reflux disease [Unknown]
  - Stress [Unknown]
  - Feeling abnormal [Unknown]
  - Pollakiuria [Unknown]
  - Sinus disorder [Recovered/Resolved]
  - Abnormal faeces [Unknown]
  - Irritability [Unknown]
  - Anxiety [Unknown]
  - Faeces discoloured [Unknown]
  - Abnormal faeces [Unknown]
  - COVID-19 [Unknown]
  - Regurgitation [Unknown]
  - Paranoia [Unknown]
  - Contusion [Unknown]
  - Hyperkeratosis [Unknown]
  - Pain [Unknown]
  - Nasal obstruction [Unknown]
  - Influenza [Unknown]
  - Pruritus [Unknown]
  - Erythema [Unknown]
  - Abdominal discomfort [Unknown]
  - Vomiting [Unknown]
  - Dizziness [Unknown]
  - Hyperhidrosis [Not Recovered/Not Resolved]
  - Hot flush [Not Recovered/Not Resolved]
  - Fatigue [Unknown]
  - Constipation [Unknown]
  - Product dose omission issue [Unknown]
